FAERS Safety Report 19679652 (Version 1)
Quarter: 2021Q3

REPORT INFORMATION
  Report Type: Spontaneous
  Country: HR (occurrence: HR)
  Receive Date: 20210810
  Receipt Date: 20210810
  Transmission Date: 20211014
  Serious: Yes (Other)
  Sender: FDA-Public Use
  Company Number: HR-TEVA-2021-HR-1940641

PATIENT
  Age: 80 Year
  Sex: Female
  Weight: 70 kg

DRUGS (3)
  1. ZALDIAR [Suspect]
     Active Substance: ACETAMINOPHEN\TRAMADOL HYDROCHLORIDE
     Dosage: 1 DF = 37.5 MG TRAMADOL + 325 MG PARACETAMOL, UNIT DOSE: 30 DF
     Route: 048
     Dates: start: 202105, end: 202105
  2. IBUPROFEN. [Suspect]
     Active Substance: IBUPROFEN
     Dosage: 1 DF = 1 TABLET, UNIT DOSE: 20 DF
     Route: 048
     Dates: start: 202105, end: 202105
  3. PRAXITEN [Suspect]
     Active Substance: OXAZEPAM
     Dosage: 1350 MG
     Route: 048
     Dates: start: 202105, end: 202105

REACTIONS (4)
  - Suicide attempt [Unknown]
  - Coma [Unknown]
  - Intentional overdose [Unknown]
  - Loss of consciousness [Unknown]

NARRATIVE: CASE EVENT DATE: 202105
